FAERS Safety Report 15490384 (Version 1)
Quarter: 2018Q4

REPORT INFORMATION
  Report Type: Spontaneous
  Country: FR (occurrence: FR)
  Receive Date: 20181011
  Receipt Date: 20181011
  Transmission Date: 20190205
  Serious: Yes (Hospitalization)
  Sender: FDA-Public Use
  Company Number: PHHY2018FR120101

PATIENT
  Age: 48 Year
  Sex: Male

DRUGS (4)
  1. SULFADIAZINE. [Suspect]
     Active Substance: SULFADIAZINE
     Indication: TUBERCULOSIS
     Dosage: 6000 MG, QD
     Route: 048
     Dates: start: 20180508
  2. PIRILENE [Suspect]
     Active Substance: PYRAZINAMIDE
     Indication: TUBERCULOSIS
     Dosage: 500 MG, QD
     Route: 048
     Dates: start: 20180508
  3. MINOCYCLINE [Suspect]
     Active Substance: MINOCYCLINE\MINOCYCLINE HYDROCHLORIDE
     Indication: TUBERCULOSIS
     Dosage: 200 MG, QD
     Route: 048
     Dates: start: 20180508
  4. LAMPRENE [Suspect]
     Active Substance: CLOFAZIMINE
     Indication: TUBERCULOSIS
     Dosage: 100 MG, UNK
     Route: 048
     Dates: start: 20180508

REACTIONS (2)
  - Oral mucosal discolouration [Not Recovered/Not Resolved]
  - Aplastic anaemia [Recovering/Resolving]

NARRATIVE: CASE EVENT DATE: 20180612
